FAERS Safety Report 5965015-0 (Version None)
Quarter: 2008Q4

REPORT INFORMATION
  Report Type: 
  Country: None (occurrence: None)
  Receive Date: 20081125
  Receipt Date: 20081113
  Transmission Date: 20090506
  Serious: Yes (Other)
  Sender: FDA-Public Use
  Company Number: PHBS2007MX09971

PATIENT
  Age: 10 Year
  Sex: Female

DRUGS (1)
  1. TORECAN [Suspect]
     Indication: VOMITING
     Dosage: 6.5 MG
     Route: 048
     Dates: start: 20070601

REACTIONS (7)
  - ASTHENIA [None]
  - DYSKINESIA [None]
  - EXCESSIVE EYE BLINKING [None]
  - HYPOAESTHESIA FACIAL [None]
  - MUSCLE CONTRACTURE [None]
  - OCULOGYRIC CRISIS [None]
  - PAIN [None]
